FAERS Safety Report 4703143-8 (Version None)
Quarter: 2005Q2

REPORT INFORMATION
  Report Type: 
  Country: None (occurrence: None)
  Receive Date: 20050629
  Receipt Date: 20050623
  Transmission Date: 20051028
  Serious: Yes (Hospitalization)
  Sender: FDA-Public Use
  Company Number: CH-GLAXOSMITHKLINE-B0386121A

PATIENT
  Age: 79 Year
  Sex: Female

DRUGS (11)
  1. DEROXAT [Suspect]
     Indication: DRUG USE FOR UNKNOWN INDICATION
     Dosage: 20MG PER DAY
     Route: 048
  2. PHENPROCOUMON [Suspect]
     Indication: DRUG USE FOR UNKNOWN INDICATION
     Dosage: 3MG AS REQUIRED
     Route: 048
     Dates: end: 20050529
  3. ASPIRIN [Suspect]
     Indication: DRUG USE FOR UNKNOWN INDICATION
     Dosage: 100MG PER DAY
     Route: 048
     Dates: end: 20050529
  4. METOPROLOL TARTRATE [Concomitant]
     Dosage: .5TAB PER DAY
     Route: 048
  5. LEVOTHYROXINE SODIUM [Concomitant]
     Dosage: .1MG THREE TIMES PER WEEK
     Route: 048
  6. ATORVASTATIN CALCIUM [Concomitant]
     Dosage: 10MG PER DAY
     Route: 048
  7. SEVELAMER HYDROCHLORIDE [Concomitant]
     Dosage: 800MG TWICE PER DAY
     Route: 048
  8. CALCIUM CARBONATE [Concomitant]
     Dosage: 1G TWICE PER DAY
     Route: 048
  9. ZOPICLONE [Concomitant]
     Dosage: 7.5MG PER DAY
     Route: 048
  10. GUAR GUM [Concomitant]
     Dosage: .5U PER DAY
     Route: 048
  11. CINACALCET HYDROCHLORIDE [Concomitant]
     Dosage: 30MG PER DAY
     Route: 048

REACTIONS (1)
  - EPISTAXIS [None]
